FAERS Safety Report 9896336 (Version 2)
Quarter: 2014Q1

REPORT INFORMATION
  Report Type: Spontaneous
  Country: US (occurrence: US)
  Receive Date: 20140213
  Receipt Date: 20140213
  Transmission Date: 20141002
  Serious: No
  Sender: FDA-Public Use
  Company Number: US-BRISTOL-MYERS SQUIBB COMPANY-19074079

PATIENT
  Age: 62 Year
  Sex: Male
  Weight: 120.63 kg

DRUGS (8)
  1. ABATACEPT SUBQ INJECTION 125MG/ML [Suspect]
     Indication: RHEUMATOID ARTHRITIS
     Dosage: 1 DF : 125MG/ML?EVERY WEEK?1 CC
     Route: 058
     Dates: start: 201304
  2. PRAVASTATIN MR [Concomitant]
  3. NEXIUM [Concomitant]
  4. MULTIVITAMIN [Concomitant]
  5. METHOTREXATE [Concomitant]
  6. LEFLUNOMIDE [Concomitant]
  7. BISOPROLOL [Concomitant]
  8. ASPIRIN [Concomitant]

REACTIONS (5)
  - Injection site bruising [Recovered/Resolved]
  - Fatigue [Not Recovered/Not Resolved]
  - Pain [Not Recovered/Not Resolved]
  - Impaired healing [Not Recovered/Not Resolved]
  - Scratch [Not Recovered/Not Resolved]
